FAERS Safety Report 25003052 (Version 1)
Quarter: 2025Q1

REPORT INFORMATION
  Report Type: Report from Study
  Country: US (occurrence: None)
  Receive Date: 20250224
  Receipt Date: 20250224
  Transmission Date: 20250409
  Serious: Yes (Death, Hospitalization, Other)
  Sender: NODEN PHARMA
  Company Number: US-Noden Pharma DAC-NOD202502-000031

PATIENT
  Age: 9 Year
  Sex: Female

DRUGS (1)
  1. COCAINE HYDROCHLORIDE [Suspect]
     Active Substance: COCAINE HYDROCHLORIDE
     Indication: Product used for unknown indication
     Route: 065

REACTIONS (11)
  - Cardiac arrest [Fatal]
  - Respiratory arrest [Fatal]
  - Pneumonia [Fatal]
  - Death [Fatal]
  - Cardiac arrest [Fatal]
  - Heart rate irregular [Fatal]
  - Diarrhoea [Unknown]
  - Vomiting [Unknown]
  - Pain [Unknown]
  - Urinary incontinence [Unknown]
  - Anal incontinence [Unknown]
